FAERS Safety Report 18689143 (Version 1)
Quarter: 2020Q4

REPORT INFORMATION
  Report Type: Spontaneous
  Country: US (occurrence: US)
  Receive Date: 20201231
  Receipt Date: 20201231
  Transmission Date: 20210114
  Serious: No
  Sender: FDA-Public Use
  Company Number: US-VERTEX PHARMACEUTICALS-2020-025442

PATIENT
  Sex: Female
  Weight: 13.15 kg

DRUGS (7)
  1. CREON [Concomitant]
     Active Substance: PANCRELIPASE AMYLASE\PANCRELIPASE LIPASE\PANCRELIPASE PROTEASE
     Dosage: 6K-19K-30K CAPSULE DR
  2. ORKAMBI [Suspect]
     Active Substance: IVACAFTOR\LUMACAFTOR
     Dosage: UNK
     Route: 048
     Dates: start: 201904
  3. PULMOZYME [Concomitant]
     Active Substance: DORNASE ALFA
  4. ALBUTEROL SULFATE HFA [Concomitant]
     Active Substance: ALBUTEROL SULFATE
  5. ORKAMBI [Suspect]
     Active Substance: IVACAFTOR\LUMACAFTOR
     Indication: CYSTIC FIBROSIS
     Route: 048
  6. HYPERSAL [Concomitant]
     Active Substance: SODIUM CHLORIDE
     Dosage: 3.5 % VIAL-NEB,
  7. VITAMIN D3 [Concomitant]
     Active Substance: CHOLECALCIFEROL
     Dosage: 400/ML DROPS,

REACTIONS (1)
  - Infective pulmonary exacerbation of cystic fibrosis [Unknown]

NARRATIVE: CASE EVENT DATE: 2020
